FAERS Safety Report 7502602-2 (Version None)
Quarter: 2011Q2

REPORT INFORMATION
  Report Type: 
  Country: None (occurrence: None)
  Receive Date: 20110525
  Receipt Date: 20110516
  Transmission Date: 20111010
  Serious: Yes (Other)
  Sender: FDA-Public Use
  Company Number: US-MYLANLABS-2011S1008142

PATIENT
  Age: 51 Year
  Sex: Female

DRUGS (1)
  1. PHENYTOIN SODIUM CAP [Suspect]
     Indication: CONVULSION
     Route: 048
     Dates: start: 20110408

REACTIONS (4)
  - SOMNOLENCE [None]
  - CONVULSION [None]
  - VISION BLURRED [None]
  - DRUG INEFFECTIVE [None]
